FAERS Safety Report 7445127-5 (Version None)
Quarter: 2011Q2

REPORT INFORMATION
  Report Type: 
  Country: None (occurrence: None)
  Receive Date: 20110429
  Receipt Date: 20110426
  Transmission Date: 20111010
  Serious: Yes (Other)
  Sender: FDA-Public Use
  Company Number: FR-PFIZER INC-2011002288

PATIENT
  Age: 43 Year
  Sex: Female
  Weight: 75.5 kg

DRUGS (4)
  1. LYRICA [Suspect]
     Indication: OFF LABEL USE
     Dosage: 150 MG; DAILY
     Route: 048
     Dates: start: 20100625
  2. LYRICA [Suspect]
     Indication: NEURALGIA
  3. INTERFERON [Concomitant]
     Dosage: UNK
     Dates: start: 20090311
  4. LYRICA [Suspect]
     Indication: MULTIPLE SCLEROSIS

REACTIONS (1)
  - OCULAR HYPERTENSION [None]
